FAERS Safety Report 9363399 (Version 1)
Quarter: 2013Q2

REPORT INFORMATION
  Report Type: Spontaneous
  Country: BR (occurrence: None)
  Receive Date: 20130620
  Receipt Date: 20130620
  Transmission Date: 20140414
  Serious: Yes (Death, Hospitalization)
  Sender: FDA-Public Use
  Company Number: DSJ-2013-13671

PATIENT
  Age: 56 Year
  Sex: Male

DRUGS (1)
  1. BENICAR (OLMESARTAN MEDOXOMIL) (TABLET) (OLMESARTAN MEDOXOMIL) [Suspect]
     Indication: HYPERTENSION
     Dosage: 40 MG (40 MG, 1 IN 1 D) PER ORAL
     Route: 048
     Dates: start: 2011, end: 201305

REACTIONS (4)
  - Inguinal hernia repair [None]
  - Kidney infection [None]
  - Renal failure [None]
  - Infection [None]
